FAERS Safety Report 4809242-4 (Version None)
Quarter: 2005Q4

REPORT INFORMATION
  Report Type: 
  Country: None (occurrence: None)
  Receive Date: 20051021
  Receipt Date: 20020123
  Transmission Date: 20060501
  Serious: No
  Sender: FDA-Public Use
  Company Number: GBS020110044

PATIENT
  Age: 38 Year
  Sex: Male
  Weight: 76 kg

DRUGS (1)
  1. ZYPREXA [Suspect]
     Indication: SCHIZOPHRENIA
     Dosage: 20 MG
     Dates: start: 20011019

REACTIONS (1)
  - NEUTROPHIL COUNT DECREASED [None]
